FAERS Safety Report 8557683-4 (Version None)
Quarter: 2012Q2

REPORT INFORMATION
  Report Type: 
  Country: None (occurrence: None)
  Receive Date: 20120418
  Receipt Date: 20110328
  Transmission Date: 20120825
  Serious: Yes (Other)
  Sender: FDA-Public Use
  Company Number: PHHY2011US25803

PATIENT
  Age: 80 Year
  Sex: Female

DRUGS (11)
  1. PEPCID COMPLETE [Concomitant]
  2. BENADRYL [Concomitant]
  3. SYNTHROID [Concomitant]
  4. PLAVIX [Concomitant]
  5. ASPIRIN [Concomitant]
  6. PROTONIX [Concomitant]
  7. ACETAMINOPHEN [Concomitant]
  8. GEMFIBROZIL [Concomitant]
  9. DIOVAN HCT [Suspect]
     Indication: HYPERTENSION
     Dosage: VALSARTAN 320 AND HYDROCHLOROTHIAZIDE 25, ORAL
     Route: 048
  10. NORVASC [Concomitant]
  11. METOPROLOL TARTRATE [Concomitant]

REACTIONS (4)
  - HYPOTENSION [None]
  - HEAD DISCOMFORT [None]
  - FEAR [None]
  - BLOOD PRESSURE FLUCTUATION [None]
